FAERS Safety Report 9793215 (Version 1)
Quarter: 2013Q4

REPORT INFORMATION
  Report Type: Spontaneous
  Country: US (occurrence: None)
  Receive Date: 20131231
  Receipt Date: 20131231
  Transmission Date: 20140711
  Serious: Yes (Death)
  Sender: FDA-Public Use
  Company Number: None

PATIENT
  Age: 72 Year
  Sex: Male
  Weight: 121 kg

DRUGS (13)
  1. PHENELZINE SULFATE [Suspect]
     Indication: PROSTATE CANCER
     Route: 048
     Dates: start: 20130919, end: 20131225
  2. DOCETAXEL [Suspect]
     Indication: PROSTATE CANCER
     Route: 042
     Dates: start: 20130520, end: 20131225
  3. WARFARIN [Concomitant]
  4. FUROSEMIDE [Concomitant]
  5. HYDROCODONE-ACETAMINOPHEN [Concomitant]
  6. LEUPROLIDE ACETATE [Concomitant]
  7. MEGESTROL [Concomitant]
  8. MORPHINE ER [Concomitant]
  9. PREDNISONE [Concomitant]
  10. THERAPEUTIC MULTIVITAMIN [Concomitant]
  11. VITAMIN B COMPLEX [Concomitant]
  12. LORAZEPAM [Concomitant]
  13. CALCIUM CARBONATE [Concomitant]

REACTIONS (1)
  - Abdominal discomfort [None]
